FAERS Safety Report 21517814 (Version 3)
Quarter: 2022Q4

REPORT INFORMATION
  Report Type: Report from Study
  Country: DE (occurrence: DE)
  Receive Date: 20221028
  Receipt Date: 20221108
  Transmission Date: 20230113
  Serious: Yes (Death, Life-Threatening, Hospitalization, Other)
  Sender: FDA-Public Use
  Company Number: DE-CELGENE-DEU-20170905986

PATIENT
  Age: 75 Year
  Sex: Female
  Weight: 65 kg

DRUGS (4)
  1. PACLITAXEL [Suspect]
     Active Substance: PACLITAXEL
     Indication: Pancreatic carcinoma metastatic
     Dosage: 125 MG/M?, INTRAVENOUS INFUSION OVER 30 MINUTES, DAYS D1, D8, D15 OF A 28-DAY CYCLE ((DOSE // DAILY
     Route: 042
     Dates: start: 20170627, end: 20170904
  2. GEMCITABINE [Suspect]
     Active Substance: GEMCITABINE
     Indication: Pancreatic carcinoma metastatic
     Dosage: 1000 MG/M? AS A 30-MINUTE I.V. INFUSION; ON DAYS D1, D8, D15 OF A 28-DAY CYCLE - ((DOSE // DAILY DOS
     Route: 042
     Dates: start: 20170627, end: 20170904
  3. NITROFURANTOIN [Concomitant]
     Active Substance: NITROFURANTOIN
     Indication: Urinary tract infection
     Route: 048
     Dates: start: 20170921
  4. PIPERACILLIN AND TAZOBACTAM [Concomitant]
     Active Substance: PIPERACILLIN SODIUM\TAZOBACTAM SODIUM
     Indication: Urinary tract infection
     Dosage: DOSE: 4/4.5, 1 DOSAGE FORM
     Route: 042
     Dates: start: 20170921

REACTIONS (2)
  - Multiple organ dysfunction syndrome [Fatal]
  - Cardiac failure [Not Recovered/Not Resolved]

NARRATIVE: CASE EVENT DATE: 20170918
